FAERS Safety Report 6860573-6 (Version None)
Quarter: 2010Q3

REPORT INFORMATION
  Report Type: 
  Country: None (occurrence: None)
  Receive Date: 20100720
  Receipt Date: 20100712
  Transmission Date: 20110219
  Serious: Yes (Death, Hospitalization)
  Sender: FDA-Public Use
  Company Number: B0665893A

PATIENT
  Sex: Male

DRUGS (10)
  1. AUGMENTIN '125' [Suspect]
     Indication: PRODUCT USED FOR UNKNOWN INDICATION
     Route: 048
     Dates: start: 20100213
  2. IBUPROFENO [Suspect]
     Dosage: .6G THREE TIMES PER DAY
     Route: 048
     Dates: start: 20100213, end: 20100226
  3. PARACETAMOL [Suspect]
     Dosage: 1G THREE TIMES PER DAY
     Route: 048
     Dates: start: 20100213, end: 20100226
  4. ADALAT [Concomitant]
     Dates: start: 20040101, end: 20100226
  5. ASTUDAL [Concomitant]
     Dates: start: 20040101, end: 20100226
  6. KARVEZIDE [Concomitant]
     Dates: start: 20040101, end: 20100226
  7. SINTROM [Concomitant]
     Dates: start: 20080101, end: 20100226
  8. DIAMICRON [Concomitant]
     Dates: start: 20040101
  9. PRAVASTATIN [Concomitant]
     Dates: start: 20060101
  10. ADIRO [Concomitant]
     Dates: start: 20040101

REACTIONS (4)
  - ATRIOVENTRICULAR BLOCK COMPLETE [None]
  - CEREBROVASCULAR ACCIDENT [None]
  - HYPERKALAEMIA [None]
  - RENAL FAILURE ACUTE [None]
